FAERS Safety Report 6175397-5 (Version None)
Quarter: 2009Q2

REPORT INFORMATION
  Report Type: 
  Country: None (occurrence: None)
  Receive Date: 20090429
  Receipt Date: 20090415
  Transmission Date: 20091009
  Serious: Yes (Disabling)
  Sender: FDA-Public Use
  Company Number: APP200900219

PATIENT
  Age: 22 Year
  Sex: Female

DRUGS (4)
  1. MARCAINE [Suspect]
     Indication: MUSCULOSKELETAL PAIN
     Dosage: 240 ML, CONTINUOUS VIA PUMP, INTRA-ARTICULAR; 10 ML, TO PRIME PAIN PUMP CATHER
     Route: 014
     Dates: start: 20060120
  2. MARCAINE [Suspect]
     Indication: MUSCULOSKELETAL PAIN
     Dosage: 240 ML, CONTINUOUS VIA PUMP, INTRA-ARTICULAR; 10 ML, TO PRIME PAIN PUMP CATHER
     Route: 014
     Dates: start: 20060120
  3. PAINBUSTER PAIN PUMP [Suspect]
     Indication: MUSCULOSKELETAL PAIN
     Dosage: 240 ML,  CONTINUOUS VIA
     Dates: start: 20060120
  4. LIDOCAINE W/ EPINEPHRINE [Suspect]
     Indication: LOCAL ANAESTHESIA
     Dosage: INJECTION
     Dates: start: 20060120

REACTIONS (3)
  - ARTHROPATHY [None]
  - CHONDROLYSIS [None]
  - MUSCULOSKELETAL PAIN [None]
